FAERS Safety Report 22283938 (Version 2)
Quarter: 2023Q2

REPORT INFORMATION
  Report Type: Report from Study
  Country: KR (occurrence: KR)
  Receive Date: 20230504
  Receipt Date: 20230518
  Transmission Date: 20230721
  Serious: Yes (Death)
  Sender: FDA-Public Use
  Company Number: KR-TEVA-2023-KR-2883008

PATIENT

DRUGS (2)
  1. DOXORUBICIN [Suspect]
     Active Substance: DOXORUBICIN
     Indication: Sarcoma
     Dosage: SCHEDULED FOR SIX CYCLES 75 MG/M 2
     Route: 065
  2. DURVALUMAB [Suspect]
     Active Substance: DURVALUMAB
     Indication: Sarcoma
     Dosage: 1500MG EVERY THREE WEEKS FOR SIX CYCLES
     Route: 065

REACTIONS (1)
  - Drug ineffective [Fatal]
